FAERS Safety Report 11524721 (Version 1)
Quarter: 2015Q3

REPORT INFORMATION
  Report Type: Spontaneous
  Country: US (occurrence: US)
  Receive Date: 20150918
  Receipt Date: 20150918
  Transmission Date: 20151125
  Serious: Yes (Hospitalization, Other)
  Sender: FDA-Public Use
  Company Number: US-ROCHE-676520

PATIENT
  Age: 60 Year
  Sex: Female

DRUGS (5)
  1. PEGASYS [Suspect]
     Active Substance: PEGINTERFERON ALFA-2A
     Indication: HEPATITIS C
     Dosage: PRE-FILLED SYRINGE
     Route: 058
  2. PROTONIX [Concomitant]
     Active Substance: PANTOPRAZOLE SODIUM
     Route: 065
  3. PROCRIT [Suspect]
     Active Substance: ERYTHROPOIETIN
     Indication: ANAEMIA
     Route: 058
  4. HYDROXYZINE [Concomitant]
     Active Substance: HYDROXYZINE\HYDROXYZINE HYDROCHLORIDE
     Route: 065
  5. RIBAVIRIN. [Suspect]
     Active Substance: RIBAVIRIN
     Indication: HEPATITIS C
     Dosage: FORM: WHITE CAPSULES; TAKEN IN DIVIDED DOSES
     Route: 048

REACTIONS (19)
  - Productive cough [Recovered/Resolved]
  - Skin ulcer [Recovering/Resolving]
  - Injection site rash [Not Recovered/Not Resolved]
  - Eye irritation [Recovering/Resolving]
  - Red blood cell count decreased [Unknown]
  - Injection site extravasation [Unknown]
  - Fatigue [Unknown]
  - Sensory disturbance [Unknown]
  - Rash [Not Recovered/Not Resolved]
  - Thyroid disorder [Unknown]
  - Chest pain [Unknown]
  - Dry skin [Not Recovered/Not Resolved]
  - Alopecia [Not Recovered/Not Resolved]
  - Dyspnoea [Unknown]
  - White blood cell count decreased [Unknown]
  - Platelet count decreased [Recovering/Resolving]
  - Nausea [Unknown]
  - Haemoglobin decreased [Unknown]
  - Gingival pain [Not Recovered/Not Resolved]

NARRATIVE: CASE EVENT DATE: 20090703
